FAERS Safety Report 4336247-2 (Version None)
Quarter: 2004Q2

REPORT INFORMATION
  Report Type: 
  Country: None (occurrence: None)
  Receive Date: 20040407
  Receipt Date: 20040318
  Transmission Date: 20050107
  Serious: Yes (Other)
  Sender: FDA-Public Use
  Company Number: JP_040302836

PATIENT
  Age: 65 Year
  Sex: Male
  Weight: 67 kg

DRUGS (10)
  1. ZYPREXA [Suspect]
     Indication: SCHIZOPHRENIA, PARANOID TYPE
     Dosage: 10 MG/1 DAY
     Dates: start: 20030322
  2. PYRETHIA (PROMETHAZINE HYDROCHLORIDE) [Concomitant]
  3. EPIRENAT (VALPROATE SODIUM) [Concomitant]
  4. NITRAZEPAM [Concomitant]
  5. BICAMOL (BIPERIDEN HYDROCHLORIDE) [Concomitant]
  6. PURSENNID (SENNA LEAF) [Concomitant]
  7. BROMOCRIPTINE MESYLATE [Concomitant]
  8. LOXONIN (LOXOPROFEN SODIUM) [Concomitant]
  9. SERENANCE (HALOPERIDOL) [Concomitant]
  10. LAMISIL (TERBINAFINE HYDROCHLORIDE) [Concomitant]

REACTIONS (4)
  - ANAEMIA [None]
  - BLOOD LACTATE DEHYDROGENASE INCREASED [None]
  - HYPERPROLACTINAEMIA [None]
  - LUNG NEOPLASM MALIGNANT [None]
